FAERS Safety Report 12892501 (Version 5)
Quarter: 2022Q1

REPORT INFORMATION
  Report Type: Spontaneous
  Country: NL (occurrence: NL)
  Receive Date: 20161028
  Receipt Date: 20220120
  Transmission Date: 20220423
  Serious: Yes (Other)
  Sender: FDA-Public Use
  Company Number: None

PATIENT
  Age: 57 Year
  Sex: Male

DRUGS (4)
  1. IBUPROFEN [Interacting]
     Active Substance: IBUPROFEN
     Indication: Tooth extraction
     Dosage: 600 MG, TID
     Route: 065
  2. IBUPROFEN [Interacting]
     Active Substance: IBUPROFEN
     Dosage: 600 MILLIGRAM; ONCE A DAY
     Route: 065
  3. IBUPROFEN [Interacting]
     Active Substance: IBUPROFEN
     Dosage: 600 MILLIGRAM, TID
     Route: 065
  4. EMTRICITABINE\RILPIVIRINE\TENOFOVIR DISOPROXIL FUMARATE [Interacting]
     Active Substance: EMTRICITABINE\RILPIVIRINE\TENOFOVIR DISOPROXIL FUMARATE
     Indication: HIV infection
     Dosage: UNK
     Route: 065

REACTIONS (9)
  - Drug interaction [Recovered/Resolved]
  - Renal tubular dysfunction [Recovered/Resolved]
  - Glomerular filtration rate decreased [Recovered/Resolved]
  - Fractional excretion of phosphate [Recovered/Resolved]
  - Glycosuria [Recovered/Resolved]
  - Hypophosphataemia [Recovered/Resolved]
  - Urine protein/creatinine ratio increased [Recovered/Resolved]
  - Proteinuria [Recovered/Resolved]
  - Renal injury [Recovered/Resolved]
